FAERS Safety Report 9230265 (Version 3)
Quarter: 2014Q2

REPORT INFORMATION
  Report Type: Report from Study
  Country: AU (occurrence: AU)
  Receive Date: 20130415
  Receipt Date: 20140609
  Transmission Date: 20141212
  Serious: Yes (Other)
  Sender: FDA-Public Use
  Company Number: PHHY2013AU035092

PATIENT
  Age: 77 Year
  Sex: Female

DRUGS (25)
  1. ACLASTA [Suspect]
     Indication: OSTEOPOROSIS
     Dosage: 5 MG, UNK
     Route: 042
     Dates: start: 20120412
  2. ATROVENT UDV [Concomitant]
     Dosage: 1 TO 2 VIA NEB AS DIRECTED.
  3. AVAPRO [Concomitant]
     Dosage: 1 DF, UNK
  4. BRICANYL TURBUHALER [Concomitant]
     Dosage: 500MCG/PUFF, 1 DF, EVERY 4 HOURS CHANGE TO 2X100 AS PER NHS
  5. CALTRATE + VITAMIN D [Concomitant]
     Dosage: 600 MG:200 IU TABLET
  6. CARTIA//ACETYLSALICYLIC ACID [Concomitant]
     Dosage: 1 DF, UNK
  7. CLARITHRO [Concomitant]
     Dosage: 1 DF, DAILY
  8. EFUDIX [Concomitant]
     Dosage: APPLY AS DIRECTED
  9. FAB IRON [Concomitant]
     Dosage: 1 DF, DAILY
  10. FRUSEMIDE [Concomitant]
     Dosage: 1 DF, IN THE MORNING
  11. FUNGILIN [Concomitant]
     Dosage: 1 DF, FOUR TIMES A DAY FOR 7 DAYS
  12. LEXAPRO [Concomitant]
     Dosage: 1 DF, DAILY
  13. MAXEPA [Concomitant]
     Dosage: 1 DF, TWICE A DAY
  14. NUELIN [Concomitant]
     Dosage: 1 DF IN THE MORNING
  15. ORDINE [Concomitant]
     Indication: DYSPNOEA
     Dosage: 1 ML, EVERY 4 HR PRN
  16. PANADOL OSTEO [Concomitant]
     Dosage: 1 DF, TWICE A DAY
  17. PREDNISONE [Concomitant]
     Indication: ASTHMA
     Dosage: 25 MG, PRN, AS DIRECTED DAILY AS DIRECTED
  18. PREDNISONE [Concomitant]
     Indication: CHRONIC OBSTRUCTIVE PULMONARY DISEASE
     Dosage: 5 MG, AS DIRECTED DAILY
  19. SOMAC [Concomitant]
     Dosage: 1 DF, TWICE DAILY
  20. SPIRIVA [Concomitant]
     Dosage: 18 MCG 1 INHALATION 1 DAILY
     Route: 055
  21. SYMBICORT [Concomitant]
     Dosage: 400/12 400 MCG; 12 MCG/DOSE TURBUHALER 1 TWICE A DAY
  22. TOBRAMYCIN [Concomitant]
     Dosage: 160 MG, DAILY
  23. VENTOLIN NEBULAS [Concomitant]
     Dosage: 1 DF, THREE TIMES A DAY
  24. VITAMIN D [Concomitant]
     Dosage: 1 DF, ONCE A MONTH
  25. ZYPREXA [Concomitant]
     Dosage: 0.5 DF, UNK

REACTIONS (5)
  - Pseudomonas infection [Unknown]
  - Staphylococcal infection [Unknown]
  - Vitamin D deficiency [Unknown]
  - Anaemia [Unknown]
  - Constipation [Unknown]
